FAERS Safety Report 9416931 (Version 1)
Quarter: 2013Q3

REPORT INFORMATION
  Report Type: Spontaneous
  Country: RO (occurrence: None)
  Receive Date: 20130719
  Receipt Date: 20130719
  Transmission Date: 20140515
  Serious: Yes (Congenital Anomaly)
  Sender: FDA-Public Use
  Company Number: 2013P1012036

PATIENT
  Sex: Female
  Weight: 2.2 kg

DRUGS (2)
  1. PHENOBARBITAL [Suspect]
     Indication: PARTIAL SEIZURES
     Route: 064
  2. CARBAMAZEPINE [Suspect]
     Indication: PARTIAL SEIZURES
     Route: 064

REACTIONS (19)
  - Maternal drugs affecting foetus [None]
  - Stillbirth [None]
  - Foetal malformation [None]
  - Sirenomelia [None]
  - Congenital urethral anomaly [None]
  - Anal atresia [None]
  - Congenital genital malformation female [None]
  - Low set ears [None]
  - Congenital nose malformation [None]
  - Brachydactyly [None]
  - Congenital nail disorder [None]
  - Prognathism [None]
  - Congenital eyelid malformation [None]
  - Congenital foot malformation [None]
  - Renal aplasia [None]
  - Uterine aplasia [None]
  - Bladder agenesis [None]
  - Single umbilical artery [None]
  - Potentiating drug interaction [None]
